FAERS Safety Report 15639764 (Version 1)
Quarter: 2018Q4

REPORT INFORMATION
  Report Type: Spontaneous
  Country: US (occurrence: US)
  Receive Date: 20181120
  Receipt Date: 20181120
  Transmission Date: 20190205
  Serious: Yes (Death, Life-Threatening, Hospitalization, Other)
  Sender: FDA-Public Use
  Company Number: US-SA-2018SA302981

PATIENT
  Age: 65 Year
  Sex: Male

DRUGS (5)
  1. PREDNISONE. [Suspect]
     Active Substance: PREDNISONE
     Indication: IMMUNOSUPPRESSANT DRUG THERAPY
  2. AZATHIOPRINE. [Suspect]
     Active Substance: AZATHIOPRINE
     Indication: IMMUNOSUPPRESSANT DRUG THERAPY
  3. TACROLIMUS. [Suspect]
     Active Substance: TACROLIMUS
     Indication: IMMUNOSUPPRESSANT DRUG THERAPY
  4. VORICONAZOLE. [Suspect]
     Active Substance: VORICONAZOLE
     Indication: ANTIFUNGAL TREATMENT
  5. ANTI-THYMOCYTE GLOBULIN (RABBIT) NOS [Suspect]
     Active Substance: LAPINE T-LYMPHOCYTE IMMUNE GLOBULIN
     Indication: TRANSPLANT REJECTION

REACTIONS (12)
  - Dysphonia [Fatal]
  - Drug ineffective [Fatal]
  - Dysphagia [Fatal]
  - Septic shock [Fatal]
  - Cough [Fatal]
  - Dyspnoea [Fatal]
  - Hypoxia [Fatal]
  - Tracheal obstruction [Fatal]
  - Pneumonia [Fatal]
  - Systemic mycosis [Fatal]
  - Laryngeal mass [Fatal]
  - Fungal infection [Fatal]

NARRATIVE: CASE EVENT DATE: 2016
